FAERS Safety Report 6028971-0 (Version None)
Quarter: 2009Q1

REPORT INFORMATION
  Report Type: 
  Country: None (occurrence: None)
  Receive Date: 20090106
  Receipt Date: 20081230
  Transmission Date: 20090719
  Serious: Yes (Other)
  Sender: FDA-Public Use
  Company Number: PHHY2008MT33377

PATIENT
  Age: 41 Year
  Sex: Male

DRUGS (3)
  1. ACLASTA [Suspect]
     Indication: BONE DENSITY DECREASED
     Dosage: 5 MG/ 100 ML
     Dates: start: 20081207
  2. TETANUS TOXOID [Interacting]
  3. PARACETAMOL [Concomitant]

REACTIONS (6)
  - FEELING ABNORMAL [None]
  - HEADACHE [None]
  - MALAISE [None]
  - MUSCULOSKELETAL STIFFNESS [None]
  - PYREXIA [None]
  - VOMITING [None]
